FAERS Safety Report 8265137-8 (Version None)
Quarter: 2012Q2

REPORT INFORMATION
  Report Type: 
  Country: None (occurrence: None)
  Receive Date: 20120406
  Receipt Date: 20120402
  Transmission Date: 20120825
  Serious: Yes (Death)
  Sender: FDA-Public Use
  Company Number: GB-ROCHE-1052407

PATIENT
  Sex: Male

DRUGS (27)
  1. WARFARIN SODIUM [Concomitant]
  2. ALFACALCIDOL [Concomitant]
     Dates: end: 20120319
  3. AUGMENTIN '125' [Concomitant]
     Dates: start: 20111121
  4. ATORVASTATIN [Concomitant]
     Dates: start: 20030423, end: 20120319
  5. CALCIUM ACETATE [Concomitant]
     Dates: start: 20060412, end: 20120319
  6. OLANZAPINE [Concomitant]
     Dates: start: 20120229, end: 20120319
  7. SERTRALINE HYDROCHLORIDE [Concomitant]
     Dates: start: 20120229, end: 20120319
  8. FRESUBIN [Concomitant]
     Dates: start: 20120227, end: 20120319
  9. ALBUTEROL [Concomitant]
  10. MIRTAZAPINE [Concomitant]
     Dates: start: 20120110, end: 20120319
  11. SPIRONOLACTONE [Concomitant]
     Dates: start: 20110709, end: 20120319
  12. FENTANYL [Concomitant]
     Dates: start: 20120227, end: 20120319
  13. MIRCERA [Suspect]
     Indication: NEPHROGENIC ANAEMIA
     Route: 042
  14. BISOPROLOL FUMARATE [Concomitant]
  15. OMEPRAZOLE [Concomitant]
     Dates: start: 19990413, end: 20120319
  16. GABAPENTIN [Concomitant]
     Dates: start: 20120227, end: 20120319
  17. LORATINE [Concomitant]
     Dates: start: 20120222, end: 20120319
  18. AUGMENTIN '125' [Concomitant]
     Dates: start: 20111208
  19. ACETAMINOPHEN [Concomitant]
     Dates: start: 20111208, end: 20120319
  20. ROPINIROLE [Concomitant]
     Dates: start: 20100316
  21. LEVEMIR [Concomitant]
     Dates: start: 20060710
  22. NOVORAPID [Concomitant]
     Dates: start: 20060710, end: 20120319
  23. QUININE SULFATE [Concomitant]
  24. FUROSEMIDE [Concomitant]
     Dates: start: 20020709
  25. LORAZEPAM [Concomitant]
     Dates: start: 20120229, end: 20120319
  26. CLINDAMYCIN [Concomitant]
     Dates: start: 20111115
  27. NITRAZEPAM [Concomitant]
     Dates: start: 20111115, end: 20120319

REACTIONS (1)
  - DEATH [None]
